FAERS Safety Report 12667715 (Version 6)
Quarter: 2017Q3

REPORT INFORMATION
  Report Type: Spontaneous
  Country: US (occurrence: US)
  Receive Date: 20160819
  Receipt Date: 20170705
  Transmission Date: 20171127
  Serious: Yes (Other)
  Sender: FDA-Public Use
  Company Number: US-BAYER-2016-154889

PATIENT
  Age: 81 Year
  Sex: Male

DRUGS (6)
  1. LUPRON [Suspect]
     Active Substance: LEUPROLIDE ACETATE
     Indication: PRODUCT USED FOR UNKNOWN INDICATION
     Dosage: UNK
  2. XTANDI [Suspect]
     Active Substance: ENZALUTAMIDE
     Indication: PROSTATE CANCER
     Dosage: DAILY DOSE 160 MG
     Route: 048
     Dates: start: 20160316
  3. NILUTAMIDE. [Suspect]
     Active Substance: NILUTAMIDE
     Indication: PRODUCT USED FOR UNKNOWN INDICATION
     Dosage: UNK
     Dates: start: 20090123
  4. CIPRO [Suspect]
     Active Substance: CIPROFLOXACIN HYDROCHLORIDE
     Indication: PRODUCT USED FOR UNKNOWN INDICATION
     Dosage: UNK
  5. XTANDI [Suspect]
     Active Substance: ENZALUTAMIDE
     Indication: PROSTATE CANCER
     Dosage: 40 MG, QID
     Route: 048
     Dates: start: 20160402
  6. METRONIDAZOLE. [Suspect]
     Active Substance: METRONIDAZOLE
     Indication: PRODUCT USED FOR UNKNOWN INDICATION
     Dosage: UNK

REACTIONS (19)
  - Initial insomnia [None]
  - Abnormal dreams [Recovering/Resolving]
  - Prostatic specific antigen increased [None]
  - Product storage error [None]
  - Asthenia [Recovering/Resolving]
  - Feeling abnormal [Not Recovered/Not Resolved]
  - Diverticulitis [None]
  - Pain in extremity [Not Recovered/Not Resolved]
  - Somnolence [Unknown]
  - Burning sensation [Recovered/Resolved]
  - Hot flush [Not Recovered/Not Resolved]
  - Insomnia [None]
  - Arthralgia [Not Recovered/Not Resolved]
  - Pain [Not Recovered/Not Resolved]
  - Hyperhidrosis [None]
  - Decreased interest [Unknown]
  - Apathy [Not Recovered/Not Resolved]
  - Flatulence [None]
  - Fatigue [Unknown]

NARRATIVE: CASE EVENT DATE: 201604
